FAERS Safety Report 25262630 (Version 1)
Quarter: 2025Q2

REPORT INFORMATION
  Report Type: Spontaneous
  Country: IN (occurrence: IN)
  Receive Date: 20250502
  Receipt Date: 20250502
  Transmission Date: 20250716
  Serious: No
  Sender: ALKEM
  Company Number: IN-ALKEM LABORATORIES LIMITED-IN-ALKEM-2024-10888

PATIENT
  Age: 65 Year
  Sex: Female

DRUGS (2)
  1. LIDOCAINE [Suspect]
     Active Substance: LIDOCAINE
     Indication: Anaesthesia eye
     Route: 023
  2. HYALURONIDASE [Suspect]
     Active Substance: HYALURONIDASE
     Indication: Anaesthesia eye
     Route: 023

REACTIONS (2)
  - Erythema [Unknown]
  - Hypersensitivity [Unknown]
